FAERS Safety Report 5103998-1 (Version None)
Quarter: 2006Q3

REPORT INFORMATION
  Report Type: 
  Country: None (occurrence: None)
  Receive Date: 20060908
  Receipt Date: 20060821
  Transmission Date: 20061208
  Serious: Yes (Hospitalization)
  Sender: FDA-Public Use
  Company Number: 2006PV018825

PATIENT
  Age: 59 Year
  Sex: Female
  Weight: 81.6475 kg

DRUGS (5)
  1. BYETTA [Suspect]
     Indication: DIABETES MELLITUS NON-INSULIN-DEPENDENT
     Dosage: 5 MCG; BID; SC
     Route: 058
     Dates: start: 20060701
  2. RAPAMUNE [Suspect]
  3. FUROSEMIDE [Suspect]
     Dosage: SEE IMAGE
     Route: 048
     Dates: end: 20060701
  4. FUROSEMIDE [Suspect]
     Dosage: SEE IMAGE
     Route: 048
     Dates: start: 20060701
  5. PREDNISONE [Concomitant]

REACTIONS (8)
  - ANAEMIA [None]
  - DEHYDRATION [None]
  - HEART TRANSPLANT REJECTION [None]
  - HYPERTENSION [None]
  - MALAISE [None]
  - NASOPHARYNGITIS [None]
  - NAUSEA [None]
  - PNEUMONITIS [None]
